FAERS Safety Report 6668622-5 (Version None)
Quarter: 2010Q2

REPORT INFORMATION
  Report Type: 
  Country: None (occurrence: None)
  Receive Date: 20100406
  Receipt Date: 20100401
  Transmission Date: 20101027
  Serious: Yes (Life-Threatening)
  Sender: FDA-Public Use
  Company Number: PHHY2010FR20284

PATIENT
  Sex: Female

DRUGS (6)
  1. GLEEVEC [Suspect]
     Indication: CHRONIC LYMPHOCYTIC LEUKAEMIA
     Dosage: 400 MG, DAILY
     Dates: end: 20100101
  2. SPRYCEL [Suspect]
     Indication: CHRONIC LYMPHOCYTIC LEUKAEMIA
     Dosage: 100 MG, DAILY
     Dates: start: 20080131, end: 20100113
  3. SPRYCEL [Suspect]
     Dosage: 70 MG, DAILY
  4. CLONAZEPAM [Concomitant]
     Dosage: 2 MG
  5. TERCIAN [Concomitant]
     Dosage: 25 MG
  6. SKENAN [Concomitant]
     Dosage: 30 MG, BID

REACTIONS (13)
  - ABDOMINAL PAIN [None]
  - ASTHENIA [None]
  - BACK PAIN [None]
  - CLOSTRIDIUM DIFFICILE COLITIS [None]
  - COLON CANCER METASTATIC [None]
  - DECREASED APPETITE [None]
  - METASTASES TO BONE [None]
  - METASTASES TO LIVER [None]
  - NEOPLASM MALIGNANT [None]
  - OEDEMA [None]
  - PYREXIA [None]
  - THERAPEUTIC RESPONSE DECREASED [None]
  - WEIGHT DECREASED [None]
